FAERS Safety Report 25850813 (Version 3)
Quarter: 2025Q4

REPORT INFORMATION
  Report Type: Spontaneous
  Country: US (occurrence: US)
  Receive Date: 20250926
  Receipt Date: 20251114
  Transmission Date: 20260117
  Serious: Yes (Death, Other)
  Sender: GILEAD
  Company Number: US-GILEAD-2025-0730093

PATIENT
  Age: 62 Year
  Sex: Male

DRUGS (1)
  1. YESCARTA [Suspect]
     Active Substance: AXICABTAGENE CILOLEUCEL
     Indication: Product used for unknown indication
     Dosage: UNK
     Route: 065

REACTIONS (2)
  - Death [Fatal]
  - Surgery [Unknown]
